FAERS Safety Report 20017934 (Version 3)
Quarter: 2023Q1

REPORT INFORMATION
  Report Type: Other
  Country: DE (occurrence: None)
  Receive Date: 20211101
  Receipt Date: 20230103
  Transmission Date: 20230418
  Serious: No
  Sender: FDA-Public Use
  Company Number: DE-ROCHE-2945388

PATIENT
  Age: 48 Year
  Sex: Female

DRUGS (6)
  1. OCREVUS [Suspect]
     Active Substance: OCRELIZUMAB
     Indication: Multiple sclerosis
     Route: 042
     Dates: start: 20210226
  2. COMIRNATY [Suspect]
     Active Substance: TOZINAMERAN
     Indication: Product used for unknown indication
     Dosage: 1ST DOSE
     Route: 065
     Dates: start: 20210713
  3. COMIRNATY [Suspect]
     Active Substance: TOZINAMERAN
     Dosage: 2ND DOSE
     Route: 065
     Dates: start: 20210810
  4. BACLOFEN [Concomitant]
     Active Substance: BACLOFEN
  5. MAGNESIUM [Concomitant]
     Active Substance: MAGNESIUM
  6. CHOLECALCIFEROL [Concomitant]
     Active Substance: CHOLECALCIFEROL

REACTIONS (1)
  - COVID-19 [Recovered/Resolved]

NARRATIVE: CASE EVENT DATE: 20211017
